FAERS Safety Report 4589243-4 (Version None)
Quarter: 2005Q1

REPORT INFORMATION
  Report Type: 
  Country: None (occurrence: None)
  Receive Date: 20050216
  Receipt Date: 20050203
  Transmission Date: 20050727
  Serious: Yes (Hospitalization)
  Sender: FDA-Public Use
  Company Number: HQWYE135307FEB05

PATIENT
  Age: 59 Year
  Sex: Female
  Weight: 74.8 kg

DRUGS (1)
  1. MYLOTARG [Suspect]
     Indication: ACUTE MYELOID LEUKAEMIA
     Dosage: 11 MG 1X PER 1 DAY, INTRAVENOUS
     Route: 042
     Dates: start: 20050120, end: 20050120

REACTIONS (1)
  - FEBRILE NEUTROPENIA [None]
